FAERS Safety Report 8170164-5 (Version None)
Quarter: 2012Q1

REPORT INFORMATION
  Report Type: 
  Country: None (occurrence: None)
  Receive Date: 20120228
  Receipt Date: 20120221
  Transmission Date: 20120608
  Serious: Yes (Other)
  Sender: FDA-Public Use
  Company Number: PHEH2012US004268

PATIENT
  Sex: Male

DRUGS (15)
  1. ZETIA [Concomitant]
     Dosage: 10 MG, UNK
  2. NORVASC [Concomitant]
     Dosage: 10 MG, BID
  3. BLACK CHERRY [Concomitant]
     Dosage: 1000 MG, UNK
  4. ISOSORBIDE MONONITRATE [Concomitant]
     Dosage: 30 MG, QD
  5. PRAZOSIN HYDROCHLORIDE [Concomitant]
     Dosage: 5 MG, UNK
  6. ANTACIDS [Concomitant]
     Dosage: 100 MG, UNK
  7. DIOVAN HCT [Suspect]
     Dosage: 1 DF(160/12.5 MG)  BID
  8. STOOL SOFTENER [Concomitant]
     Dosage: 100 MG, UNK
  9. POTASSIUM CHLORIDE [Concomitant]
     Dosage: 99MG 6XDAY,
  10. PLAVIX [Concomitant]
     Dosage: 75 MG, UNK
  11. ASPIRIN [Concomitant]
     Dosage: 325 MG, QD
  12. FISH OIL [Concomitant]
     Dosage: 1000 MG, BID
  13. RED YETI RICE [Concomitant]
     Dosage: 600 MG, BID
  14. GEMFIBROZIL [Concomitant]
     Dosage: 600 MG, BID
  15. ALLOPURINOL [Concomitant]
     Dosage: 100 MG, BID

REACTIONS (2)
  - FLATULENCE [None]
  - CHOLELITHIASIS [None]
